FAERS Safety Report 10756418 (Version 2)
Quarter: 2015Q1

REPORT INFORMATION
  Report Type: Spontaneous
  Country: BE (occurrence: BE)
  Receive Date: 20150202
  Receipt Date: 20150212
  Transmission Date: 20150721
  Serious: Yes (Death, Hospitalization, Other)
  Sender: FDA-Public Use
  Company Number: BE-ABBVIE-14P-013-1299331-00

PATIENT
  Sex: Male

DRUGS (12)
  1. DUODOPA [Suspect]
     Active Substance: CARBIDOPA\LEVODOPA
     Dosage: AM DOSE=3ML, CD=3ML/H FOR 16HRS AND ED=1ML
     Route: 050
     Dates: start: 20141024, end: 20141105
  2. DUODOPA [Suspect]
     Active Substance: CARBIDOPA\LEVODOPA
     Dosage: AM DOSE= 6ML, CONTIN DOSE= 7ML/H DURING 16HRS, EXTRA DOSE= 1ML
     Route: 050
     Dates: start: 20121025, end: 20141024
  3. DUODOPA [Suspect]
     Active Substance: CARBIDOPA\LEVODOPA
     Dosage: AM = 3 ML, CD = 5 ML/H DURING 16H, ED = 1 ML
     Route: 050
     Dates: start: 20141105, end: 20150127
  4. SPIRONOLACTON [Concomitant]
     Active Substance: SPIRONOLACTONE
     Indication: PRODUCT USED FOR UNKNOWN INDICATION
     Dosage: AT 8AM
  5. COVERSYL [Concomitant]
     Active Substance: PERINDOPRIL
     Indication: PRODUCT USED FOR UNKNOWN INDICATION
     Dosage: AT 8AM
  6. ARIPIPRAZOL [Concomitant]
     Active Substance: ARIPIPRAZOLE
     Indication: PRODUCT USED FOR UNKNOWN INDICATION
     Dosage: AT NOON
  7. DUODOPA [Suspect]
     Active Substance: CARBIDOPA\LEVODOPA
     Indication: PARKINSON^S DISEASE
     Route: 050
     Dates: start: 20090514, end: 20090819
  8. PROLOPA [Concomitant]
     Active Substance: BENSERAZIDE\LEVODOPA
     Indication: PRODUCT USED FOR UNKNOWN INDICATION
     Dosage: 200/50MG, WHEN FREEZING
  9. DUODOPA [Suspect]
     Active Substance: CARBIDOPA\LEVODOPA
     Dosage: AM DOSE= 3ML, CONTIN DOSE= 6.3ML/H DURING 16HRS, EXTRA DOSE=3ML
     Route: 050
     Dates: start: 20090819, end: 20100212
  10. DUODOPA [Suspect]
     Active Substance: CARBIDOPA\LEVODOPA
     Dosage: AM = 3 ML, CD = 3 M/H DURING 16H, ED = 1 ML
     Route: 050
     Dates: start: 20150127, end: 20150210
  11. DUODOPA [Suspect]
     Active Substance: CARBIDOPA\LEVODOPA
     Dosage: DOSAGE CONTINUOUSLY MONITORED AND ADJUSTED
     Route: 050
     Dates: start: 20100212, end: 20121024
  12. PROLOPA HBS [Concomitant]
     Indication: PRODUCT USED FOR UNKNOWN INDICATION
     Dosage: 100/25MG, DURING THE NIGHT

REACTIONS (9)
  - Dyskinesia [Unknown]
  - Coma [Unknown]
  - Cholecystitis acute [Unknown]
  - General physical health deterioration [Fatal]
  - Confusional state [Unknown]
  - Cardiac disorder [Unknown]
  - Peritonitis [Recovered/Resolved]
  - Somnolence [Unknown]
  - Disorientation [Not Recovered/Not Resolved]
